FAERS Safety Report 19591970 (Version 2)
Quarter: 2021Q3

REPORT INFORMATION
  Report Type: Report from Study
  Country: US (occurrence: US)
  Receive Date: 20210722
  Receipt Date: 20210902
  Transmission Date: 20211014
  Serious: Yes (Other)
  Sender: FDA-Public Use
  Company Number: US-ASTRAZENECA-2021A623173

PATIENT
  Age: 93 Year
  Sex: Female
  Weight: 54.4 kg

DRUGS (1)
  1. CALQUENCE [Suspect]
     Active Substance: ACALABRUTINIB
     Indication: CHRONIC LYMPHOCYTIC LEUKAEMIA
     Route: 048
     Dates: start: 20210520

REACTIONS (3)
  - Hypotension [Unknown]
  - White blood cell count increased [Unknown]
  - Lymphocyte count increased [Recovering/Resolving]
